FAERS Safety Report 9018507 (Version 1)
Quarter: 2013Q1

REPORT INFORMATION
  Report Type: Spontaneous
  Country: US (occurrence: None)
  Receive Date: 20130111
  Receipt Date: 20130111
  Transmission Date: 20140127
  Serious: No
  Sender: FDA-Public Use
  Company Number: None

PATIENT
  Age: 49 Year
  Sex: Female

DRUGS (2)
  1. SEVOFLURANE [Suspect]
     Dates: start: 20040723, end: 20040723
  2. CEFAZOLIN [Suspect]
     Dates: start: 20040723, end: 20040723

REACTIONS (12)
  - Nausea [None]
  - Constipation [None]
  - Dyspepsia [None]
  - Pruritus [None]
  - Aspartate aminotransferase increased [None]
  - Alanine aminotransferase increased [None]
  - Blood alkaline phosphatase increased [None]
  - Blood bilirubin increased [None]
  - Gallbladder polyp [None]
  - Hepatitis cholestatic [None]
  - Biliary tract disorder [None]
  - Hepatic fibrosis [None]
